FAERS Safety Report 8105245-5 (Version None)
Quarter: 2012Q1

REPORT INFORMATION
  Report Type: 
  Country: None (occurrence: None)
  Receive Date: 20120201
  Receipt Date: 20120125
  Transmission Date: 20120608
  Serious: No
  Sender: FDA-Public Use
  Company Number: US-B.I. PHARMACEUTICALS,INC./RIDGEFIELD-2012-BP-01565BP

PATIENT
  Sex: Male

DRUGS (17)
  1. MULTI-VITAMIN [Concomitant]
     Indication: SUPPLEMENTATION THERAPY
     Route: 048
  2. LEVOTHROID [Concomitant]
     Indication: HYPOTHYROIDISM
     Route: 048
  3. ONGLYZA [Concomitant]
     Indication: DIABETES MELLITUS
     Route: 048
  4. FENOFIBRATE [Concomitant]
     Indication: BLOOD CHOLESTEROL INCREASED
     Route: 048
  5. TOPROL-XL [Concomitant]
     Indication: HYPERTENSION
     Route: 048
  6. FISH OIL [Concomitant]
     Indication: SUPPLEMENTATION THERAPY
     Route: 048
  7. ALOE VERA GEL [Concomitant]
     Indication: SUPPLEMENTATION THERAPY
     Route: 048
  8. PRADAXA [Suspect]
     Indication: HEART RATE IRREGULAR
     Dosage: 150 MG
     Route: 048
  9. ASCORBIC ACID [Concomitant]
     Indication: SUPPLEMENTATION THERAPY
     Route: 048
  10. ZETIA [Concomitant]
     Indication: BLOOD CHOLESTEROL INCREASED
     Route: 048
  11. METFORMIN HCL [Concomitant]
     Indication: DIABETES MELLITUS
     Route: 048
  12. CRESTOR [Concomitant]
     Indication: BLOOD CHOLESTEROL INCREASED
     Route: 048
  13. GLIMEPIRIDE [Concomitant]
     Indication: DIABETES MELLITUS
     Route: 048
  14. ISOSORBIDE DINITRATE [Concomitant]
     Indication: CARDIAC FAILURE
     Route: 048
  15. VITAMIN B COMPLEX CAP [Concomitant]
     Indication: SUPPLEMENTATION THERAPY
     Route: 048
  16. AMIODARONE HCL [Concomitant]
     Indication: HYPERTENSION
     Route: 048
  17. VITAMIN D [Concomitant]
     Indication: SUPPLEMENTATION THERAPY
     Route: 048

REACTIONS (2)
  - ABDOMINAL PAIN UPPER [None]
  - FLATULENCE [None]
